FAERS Safety Report 4721597-8 (Version None)
Quarter: 2005Q3

REPORT INFORMATION
  Report Type: 
  Country: None (occurrence: None)
  Receive Date: 20050721
  Receipt Date: 20041221
  Transmission Date: 20060218
  Serious: Yes (Other)
  Sender: FDA-Public Use
  Company Number: US-BRISTOL-MYERS SQUIBB COMPANY-12802690

PATIENT
  Age: 62 Year
  Sex: Male
  Weight: 128 kg

DRUGS (12)
  1. COUMADIN [Suspect]
     Indication: ATRIAL FIBRILLATION
     Dosage: 7.5 MG/D MON,WED,+FRI; 5 MG/D SUN,TUES,THURS,+SAT= 42.5MG/WK; INTERPT'D FOR 3 DOSES, THEN 5 MG/D
     Route: 048
     Dates: start: 19980101
  2. TYLENOL [Concomitant]
  3. ALPROSTADIL [Concomitant]
  4. BUPROPION HCL [Concomitant]
  5. FUROSEMIDE [Concomitant]
  6. GLYBURIDE [Concomitant]
  7. LISINOPRIL [Concomitant]
  8. METFORMIN HCL [Concomitant]
  9. POTASSIUM CHLORIDE [Concomitant]
  10. PROPRANOLOL [Concomitant]
  11. TERAZOSIN HCL [Concomitant]
  12. TESTOSTERONE [Concomitant]

REACTIONS (1)
  - INTERNATIONAL NORMALISED RATIO INCREASED [None]
